FAERS Safety Report 9548834 (Version 1)
Quarter: 2013Q2

REPORT INFORMATION
  Report Type: Spontaneous
  Country: US (occurrence: None)
  Receive Date: 20130627
  Receipt Date: 20130627
  Transmission Date: 20140414
  Serious: No
  Sender: FDA-Public Use
  Company Number: 1000045344

PATIENT
  Age: 85 Year
  Sex: Male

DRUGS (3)
  1. LINZESS [Suspect]
     Indication: CONSTIPATION
     Dosage: 290MCG (290 MCG, 1 IN 1 D), ORAL
     Route: 048
     Dates: start: 20130520, end: 20130520
  2. WARFARIN (WARFARIN) (WARFARIN) [Concomitant]
  3. CARDURA (DOXAZOSIN MESILATE) (DOXAZOSIN MESILATE) [Concomitant]

REACTIONS (1)
  - Diarrhoea [None]
